FAERS Safety Report 7371050-0 (Version None)
Quarter: 2011Q1

REPORT INFORMATION
  Report Type: 
  Country: None (occurrence: None)
  Receive Date: 20110324
  Receipt Date: 20110317
  Transmission Date: 20110831
  Serious: Yes (Hospitalization, Other)
  Sender: FDA-Public Use
  Company Number: FR-ABBOTT-07P-056-0371651-00

PATIENT
  Sex: Male
  Weight: 2.1 kg

DRUGS (4)
  1. KALETRA [Suspect]
     Indication: PRODUCT USED FOR UNKNOWN INDICATION
     Route: 048
     Dates: start: 20070526, end: 20070530
  2. COMBIVIR [Suspect]
     Indication: DRUG EXPOSURE DURING PREGNANCY
  3. KALETRA [Suspect]
     Indication: DRUG EXPOSURE DURING PREGNANCY
  4. SAQUINAVIR [Suspect]
     Indication: DRUG EXPOSURE DURING PREGNANCY

REACTIONS (17)
  - CARDIAC FAILURE [None]
  - RENAL FAILURE ACUTE [None]
  - CAESAREAN SECTION [None]
  - MATERNAL DRUGS AFFECTING FOETUS [None]
  - ABDOMINAL DISTENSION [None]
  - COLITIS ULCERATIVE [None]
  - TOXICITY TO VARIOUS AGENTS [None]
  - HYPERKALAEMIA [None]
  - SINOATRIAL BLOCK [None]
  - GENERAL PHYSICAL HEALTH DETERIORATION [None]
  - VENTRICULAR HYPOKINESIA [None]
  - ELECTROCARDIOGRAM ABNORMAL [None]
  - ANAEMIA [None]
  - NECROTISING COLITIS [None]
  - PREMATURE BABY [None]
  - BRADYCARDIA [None]
  - DRUG EXPOSURE DURING PREGNANCY [None]
